FAERS Safety Report 24980258 (Version 1)
Quarter: 2025Q1

REPORT INFORMATION
  Report Type: Spontaneous
  Country: US (occurrence: None)
  Receive Date: 20250214
  Receipt Date: 20250214
  Transmission Date: 20250408
  Serious: Yes (Other)
  Sender: FDA-CTU
  Company Number: None

PATIENT
  Age: 46 Year
  Sex: Female
  Weight: 80.4 kg

DRUGS (1)
  1. MIRCERA [Suspect]
     Active Substance: METHOXY POLYETHYLENE GLYCOL-EPOETIN BETA
     Indication: Nephrogenic anaemia
     Route: 040
     Dates: start: 20241101, end: 20250210

REACTIONS (10)
  - Haemodialysis [None]
  - Malaise [None]
  - Flushing [None]
  - Dyspnoea [None]
  - Back pain [None]
  - Dysphonia [None]
  - Blood pressure increased [None]
  - Heart rate increased [None]
  - Drug hypersensitivity [None]
  - Therapy cessation [None]

NARRATIVE: CASE EVENT DATE: 20250210
